FAERS Safety Report 5528395-6 (Version None)
Quarter: 2007Q4

REPORT INFORMATION
  Report Type: 
  Country: None (occurrence: None)
  Receive Date: 20071128
  Receipt Date: 20060607
  Transmission Date: 20080405
  Serious: Yes (Death, Hospitalization)
  Sender: FDA-Public Use
  Company Number: US-SANOFI-SYNTHELABO-F01200701537

PATIENT
  Sex: Male
  Weight: 75 kg

DRUGS (35)
  1. AMBIEN [Concomitant]
     Indication: INSOMNIA
     Dosage: 5-10 MG
     Route: 048
     Dates: start: 20000101, end: 20050629
  2. KYTRIL [Concomitant]
     Indication: NAUSEA
     Route: 048
     Dates: start: 20050429, end: 20050629
  3. DECADRON [Concomitant]
     Dates: start: 20050120, end: 20050614
  4. SANDOSTATIN LAR [Concomitant]
     Route: 048
     Dates: start: 20040816, end: 20050407
  5. ZOMETA [Concomitant]
     Route: 042
     Dates: start: 20040101
  6. FLUOROURACIL [Suspect]
     Dosage: 828 MG (400 MG/M2) IV BOLUS THEN 1242 MG (900 MG/M2) IV INFUSION OVER 22 HOURS
     Route: 042
     Dates: start: 20050614, end: 20050614
  7. LEUCOVORIN CALCIUM [Suspect]
     Route: 042
     Dates: start: 20050614, end: 20050614
  8. AFLIBERCEPT [Suspect]
     Route: 042
     Dates: start: 20050614, end: 20050614
  9. OXALIPLATIN [Suspect]
     Indication: NEUROENDOCRINE CARCINOMA
     Route: 042
     Dates: start: 20050614, end: 20050614
  10. LEVAQUIN [Concomitant]
     Indication: UPPER RESPIRATORY TRACT INFECTION
     Dates: start: 20050627, end: 20050629
  11. NAC DIAGNOSTIC REAGENT [Concomitant]
     Route: 048
     Dates: start: 20040101, end: 20050629
  12. 7-KETO DHEA [Concomitant]
     Dates: start: 20040101, end: 20050629
  13. LTP [Concomitant]
     Route: 048
     Dates: start: 20040101, end: 20050629
  14. CENTRUM [Concomitant]
     Route: 048
     Dates: start: 20040101, end: 20050629
  15. SODIUM CHLORIDE [Concomitant]
     Route: 042
     Dates: start: 20050622
  16. CIPRO [Concomitant]
     Indication: NEUTROPENIA
     Route: 048
     Dates: start: 20050517, end: 20050524
  17. AMOXICILLIN [Concomitant]
     Route: 048
     Dates: start: 20030101, end: 20050201
  18. FLOMAX [Concomitant]
     Route: 048
     Dates: start: 20030101, end: 20040101
  19. SPIRONOLACTONE [Concomitant]
     Indication: OEDEMA PERIPHERAL
     Route: 030
     Dates: start: 20040101, end: 20041201
  20. PROVIGIL [Concomitant]
     Indication: FATIGUE
     Route: 048
     Dates: start: 20040101, end: 20041201
  21. PROVIGIL [Concomitant]
     Route: 048
     Dates: start: 20041201, end: 20050101
  22. AUGMENTIN '250' [Concomitant]
     Indication: LYMPHADENOPATHY
     Route: 048
     Dates: start: 20050607, end: 20050629
  23. VICODIN [Concomitant]
     Indication: HEADACHE
     Route: 048
     Dates: start: 20050430, end: 20050629
  24. MAALOX, LIDOCAINE, BENADRYL MOUTHWASH [Concomitant]
     Indication: STOMACH DISCOMFORT
     Dosage: 5 CC
     Route: 048
     Dates: start: 20050531, end: 20050629
  25. ARANESP [Concomitant]
     Indication: ANAEMIA
     Route: 058
     Dates: start: 20050521, end: 20050629
  26. EXCEDRIN (MIGRAINE) [Concomitant]
     Indication: HEADACHE
     Route: 048
     Dates: start: 20050430, end: 20050629
  27. TYLENOL [Concomitant]
     Indication: HEADACHE
     Route: 048
     Dates: start: 20050430, end: 20050629
  28. MEGACE [Concomitant]
     Indication: ANOREXIA
     Route: 048
     Dates: start: 20050503, end: 20050629
  29. THYROID TAB [Concomitant]
     Indication: HYPOTHYROIDISM
     Route: 048
     Dates: start: 20040101, end: 20050629
  30. TESTIM [Concomitant]
     Route: 061
     Dates: start: 20040101, end: 20050629
  31. TRANS-D TROPIN [Concomitant]
     Route: 048
     Dates: start: 20040101, end: 20050629
  32. VITAMIN B-12 [Concomitant]
     Route: 048
     Dates: start: 20040101, end: 20050629
  33. NEUPOGEN [Suspect]
     Indication: NEUTROPENIA
     Route: 058
     Dates: start: 20050531, end: 20050531
  34. NEUPOGEN [Suspect]
     Route: 058
     Dates: start: 20050607, end: 20050609
  35. NEUPOGEN [Suspect]
     Route: 058
     Dates: start: 20050621, end: 20050621

REACTIONS (2)
  - HEPATIC FAILURE [None]
  - SEPSIS [None]
